FAERS Safety Report 6581370-5 (Version None)
Quarter: 2010Q1

REPORT INFORMATION
  Report Type: 
  Country: None (occurrence: None)
  Receive Date: 20100215
  Receipt Date: 20100203
  Transmission Date: 20100710
  Serious: Yes (Other)
  Sender: FDA-Public Use
  Company Number: HR-JNJFOC-20091108015

PATIENT
  Sex: Female
  Weight: 65 kg

DRUGS (2)
  1. RISPOLEPT CONSTA [Suspect]
     Indication: SCHIZOAFFECTIVE DISORDER
     Route: 065
  2. DIAZEPAM [Concomitant]
     Route: 065

REACTIONS (1)
  - AGGRESSION [None]
